FAERS Safety Report 22178429 (Version 1)
Quarter: 2023Q2

REPORT INFORMATION
  Report Type: Spontaneous
  Country: RU (occurrence: RU)
  Receive Date: 20230405
  Receipt Date: 20230405
  Transmission Date: 20230722
  Serious: Yes (Other)
  Sender: FDA-Public Use
  Company Number: RU-002147023-NVSC2023RU078250

PATIENT
  Age: 65 Year
  Weight: 79 kg

DRUGS (4)
  1. METHOTREXATE [Suspect]
     Active Substance: METHOTREXATE
     Indication: Product used for unknown indication
     Dosage: 15 MG, QW (PER WEEK)
     Route: 065
     Dates: start: 2014
  2. METHOTREXATE [Suspect]
     Active Substance: METHOTREXATE
     Dosage: 15 MG, QW (PER WEEK)
     Route: 065
     Dates: start: 2015
  3. RITUXIMAB [Concomitant]
     Active Substance: RITUXIMAB
     Indication: Product used for unknown indication
     Dosage: UNK
     Route: 065
     Dates: start: 201512
  4. METHYLPREDNISOLONE [Concomitant]
     Active Substance: METHYLPREDNISOLONE
     Indication: Product used for unknown indication
     Dosage: 2.5 DOSAGE FORM
     Route: 065
     Dates: start: 2022

REACTIONS (13)
  - Auditory nerve disorder [Unknown]
  - Neuritis [Unknown]
  - Hypoacusis [Unknown]
  - Rheumatoid factor increased [Unknown]
  - Anti-cyclic citrullinated peptide antibody positive [Unknown]
  - Tender joint count increased [Unknown]
  - Swollen joint count increased [Unknown]
  - C-reactive protein increased [Unknown]
  - Red blood cell sedimentation rate increased [Unknown]
  - Joint noise [Unknown]
  - Arthralgia [Unknown]
  - Herpes zoster [Unknown]
  - Rash pustular [Unknown]

NARRATIVE: CASE EVENT DATE: 20160101
